FAERS Safety Report 5697834-2 (Version None)
Quarter: 2008Q2

REPORT INFORMATION
  Report Type: 
  Country: None (occurrence: None)
  Receive Date: 20080408
  Receipt Date: 20080331
  Transmission Date: 20081010
  Serious: Yes (Hospitalization)
  Sender: FDA-Public Use
  Company Number: US-JNJFOC-20071200615

PATIENT
  Sex: Male
  Weight: 20 kg

DRUGS (6)
  1. INFLIXIMAB [Suspect]
     Route: 042
  2. INFLIXIMAB [Suspect]
     Route: 042
  3. INFLIXIMAB [Suspect]
     Indication: INFLAMMATORY BOWEL DISEASE
     Route: 042
  4. URSODIOL [Concomitant]
  5. VITAMIN K1 [Concomitant]
  6. PREVACID [Concomitant]

REACTIONS (2)
  - ABDOMINAL PAIN [None]
  - VIRAL INFECTION [None]
